FAERS Safety Report 12461594 (Version 1)
Quarter: 2016Q2

REPORT INFORMATION
  Report Type: Spontaneous
  Country: BR (occurrence: BR)
  Receive Date: 20160613
  Receipt Date: 20160613
  Transmission Date: 20160815
  Serious: Yes (Other)
  Sender: FDA-Public Use
  Company Number: BR-PFIZER INC-2014164091

PATIENT
  Age: 61 Year
  Sex: Male

DRUGS (1)
  1. SOMAVERT [Suspect]
     Active Substance: PEGVISOMANT
     Indication: ACROMEGALY
     Dosage: 30 MG, DAILY (30IU)
     Route: 058
     Dates: start: 201212

REACTIONS (5)
  - Insomnia [Recovering/Resolving]
  - Diabetes mellitus [Not Recovered/Not Resolved]
  - Pain in extremity [Recovering/Resolving]
  - Hypertension [Not Recovered/Not Resolved]
  - Wrong technique in product usage process [Unknown]

NARRATIVE: CASE EVENT DATE: 201506
